FAERS Safety Report 22310862 (Version 2)
Quarter: 2023Q2

REPORT INFORMATION
  Report Type: Report from Study
  Country: US (occurrence: US)
  Receive Date: 20230511
  Receipt Date: 20230602
  Transmission Date: 20230722
  Serious: Yes (Hospitalization)
  Sender: FDA-Public Use
  Company Number: US-ARGENX-2023-ARGX-US001245AA

PATIENT

DRUGS (2)
  1. VYVGART [Suspect]
     Active Substance: EFGARTIGIMOD ALFA-FCAB
     Indication: Product used for unknown indication
     Dosage: UNK
  2. VYVGART [Suspect]
     Active Substance: EFGARTIGIMOD ALFA-FCAB
     Dosage: UNK

REACTIONS (7)
  - Myasthenia gravis crisis [Unknown]
  - Therapeutic product effect decreased [Unknown]
  - Productive cough [Unknown]
  - Dysphagia [Unknown]
  - Weight decreased [Unknown]
  - Alcohol use [Unknown]
  - Drug ineffective [Unknown]
